FAERS Safety Report 8393095-4 (Version None)
Quarter: 2012Q2

REPORT INFORMATION
  Report Type: 
  Country: None (occurrence: None)
  Receive Date: 20120529
  Receipt Date: 20120410
  Transmission Date: 20120825
  Serious: No
  Sender: FDA-Public Use
  Company Number: US-ABBOTT-12P-163-0925191-00

PATIENT
  Sex: Male
  Weight: 142.1 kg

DRUGS (3)
  1. UNKNOWN MEDICATIONS [Concomitant]
     Indication: HYPERTENSION
  2. UNKNOWN MEDICATIONS [Concomitant]
     Indication: DIABETES MELLITUS
     Route: 048
  3. ANDROGEL [Suspect]
     Indication: BLOOD TESTOSTERONE DECREASED
     Dosage: ONE PUMP PER DAY
     Dates: start: 20120401, end: 20120407

REACTIONS (1)
  - BLOOD GLUCOSE INCREASED [None]
